FAERS Safety Report 7072832-5 (Version None)
Quarter: 2010Q4

REPORT INFORMATION
  Report Type: 
  Country: None (occurrence: None)
  Receive Date: 20101029
  Receipt Date: 20100420
  Transmission Date: 20110411
  Serious: No
  Sender: FDA-Public Use
  Company Number: A0850869A

PATIENT
  Age: 40 Year
  Sex: Female
  Weight: 67.7 kg

DRUGS (2)
  1. ADVAIR DISKUS 100/50 [Suspect]
     Indication: PRODUCT USED FOR UNKNOWN INDICATION
     Route: 048
     Dates: start: 20100309, end: 20100318
  2. VENTOLIN [Concomitant]
     Route: 048

REACTIONS (2)
  - COUGH [None]
  - WHEEZING [None]
